FAERS Safety Report 17670112 (Version 3)
Quarter: 2020Q2

REPORT INFORMATION
  Report Type: Spontaneous
  Country: US (occurrence: US)
  Receive Date: 20200415
  Receipt Date: 20200626
  Transmission Date: 20200713
  Serious: Yes (Other)
  Sender: FDA-Public Use
  Company Number: US-PFIZER INC-2020154681

PATIENT
  Age: 70 Year
  Sex: Male
  Weight: 97.07 kg

DRUGS (2)
  1. SOMAVERT [Suspect]
     Active Substance: PEGVISOMANT
     Indication: ACROMEGALY
     Dosage: 30 MG, DAILY
  2. SOMAVERT [Suspect]
     Active Substance: PEGVISOMANT
     Indication: PITUITARY TUMOUR REMOVAL
     Dosage: 30 MG, 1X/DAY
     Dates: start: 2018

REACTIONS (12)
  - Hypersomnia [Recovered/Resolved]
  - Pain in extremity [Not Recovered/Not Resolved]
  - Product dose omission [Unknown]
  - Malaise [Recovered/Resolved]
  - COVID-19 [Unknown]
  - Abdominal pain [Unknown]
  - Night sweats [Recovering/Resolving]
  - Chills [Recovering/Resolving]
  - Weight decreased [Recovered/Resolved]
  - Hernia [Unknown]
  - Pyrexia [Recovered/Resolved]
  - Fatigue [Not Recovered/Not Resolved]

NARRATIVE: CASE EVENT DATE: 201904
